FAERS Safety Report 8911462 (Version 1)
Quarter: 2012Q4

REPORT INFORMATION
  Report Type: 
  Country: US (occurrence: US)
  Receive Date: 20121115
  Receipt Date: 20121115
  Transmission Date: 20130627
  Serious: Yes (Other)
  Sender: FDA-Public Use
  Company Number: US-ELI_LILLY_AND_COMPANY-US201211001701

PATIENT
  Age: 26 Year
  Sex: Male

DRUGS (1)
  1. STRATTERA [Suspect]
     Indication: ATTENTION DEFICIT/HYPERACTIVITY DISORDER
     Dosage: 60 mg, qd
     Dates: end: 20121101

REACTIONS (4)
  - Coagulopathy [Unknown]
  - Feeling abnormal [Unknown]
  - Anxiety [Unknown]
  - Drug ineffective [Unknown]
